FAERS Safety Report 8239685-0 (Version None)
Quarter: 2012Q1

REPORT INFORMATION
  Report Type: 
  Country: None (occurrence: None)
  Receive Date: 20120328
  Receipt Date: 20120321
  Transmission Date: 20120608
  Serious: Yes (Hospitalization)
  Sender: FDA-Public Use
  Company Number: US-US-EMD SERONO, INC.-7027503

PATIENT
  Sex: Female
  Weight: 53 kg

DRUGS (11)
  1. CALCIUM WITH VITAMIN D [Concomitant]
     Indication: SUPPLEMENTATION THERAPY
  2. CLONAZEPAM [Concomitant]
     Indication: INSOMNIA
  3. OXYCODONE HCL [Concomitant]
     Indication: PAIN
  4. MOTRIN [Concomitant]
     Indication: PREMEDICATION
  5. REBIF [Suspect]
     Indication: MULTIPLE SCLEROSIS
     Route: 058
     Dates: start: 20030401
  6. GABAPENTIN [Concomitant]
     Indication: PAIN
  7. MELATONIN [Concomitant]
     Indication: SLEEP DISORDER
  8. IMITREX [Concomitant]
     Indication: MIGRAINE
  9. PROTONIX [Concomitant]
     Indication: GASTROOESOPHAGEAL REFLUX DISEASE
  10. PROMETHAZINE [Concomitant]
     Indication: PRODUCT USED FOR UNKNOWN INDICATION
  11. VITAMIIN D [Concomitant]
     Indication: SUPPLEMENTATION THERAPY

REACTIONS (8)
  - MIGRAINE [None]
  - FATIGUE [None]
  - PYREXIA [None]
  - FEELING ABNORMAL [None]
  - SINUSITIS [None]
  - SARCOIDOSIS [None]
  - POST PROCEDURAL HAEMORRHAGE [None]
  - BLOOD POTASSIUM DECREASED [None]
